FAERS Safety Report 5270508-8 (Version None)
Quarter: 2007Q1

REPORT INFORMATION
  Report Type: 
  Country: None (occurrence: None)
  Receive Date: 20070320
  Receipt Date: 20070305
  Transmission Date: 20070707
  Serious: Yes (Other)
  Sender: FDA-Public Use
  Company Number: US-AVENTIS-200711531US

PATIENT
  Sex: Male
  Weight: 134 kg

DRUGS (8)
  1. LANTUS [Suspect]
  2. HUMALOG                            /00030501/ [Concomitant]
  3. PROPRANOLOL [Concomitant]
  4. ZETIA [Concomitant]
  5. ASPIRIN [Concomitant]
  6. LEVOCARNITINE [Concomitant]
     Dosage: DOSE: 330 MG X 3
  7. HYDROCHLORTHIAZID [Concomitant]
  8. NIACIN [Concomitant]
     Dosage: DOSE: UNK

REACTIONS (1)
  - WEIGHT INCREASED [None]
